FAERS Safety Report 7933282-X (Version None)
Quarter: 2011Q4

REPORT INFORMATION
  Report Type: 
  Country: None (occurrence: None)
  Receive Date: 20111122
  Receipt Date: 20111115
  Transmission Date: 20120403
  Serious: Yes (Other)
  Sender: FDA-Public Use
  Company Number: US-SANOFI-AVENTIS-2011SA075136

PATIENT
  Sex: Male

DRUGS (2)
  1. LANTUS [Suspect]
     Dosage: 2-3 YEARS
     Route: 058
  2. SOLOSTAR [Suspect]

REACTIONS (3)
  - CARDIAC PACEMAKER INSERTION [None]
  - CARDIAC DISORDER [None]
  - DYSPNOEA [None]
